FAERS Safety Report 6925509-8 (Version None)
Quarter: 2010Q3

REPORT INFORMATION
  Report Type: 
  Country: None (occurrence: None)
  Receive Date: 20100816
  Receipt Date: 20100802
  Transmission Date: 20110219
  Serious: Yes (Hospitalization, Other)
  Sender: FDA-Public Use
  Company Number: FR-ROCHE-718310

PATIENT
  Age: 57 Year
  Sex: Male

DRUGS (17)
  1. MYCOPHENOLATE MOFETIL [Suspect]
     Route: 065
  2. MYCOPHENOLATE MOFETIL [Suspect]
     Route: 065
  3. MYCOPHENOLATE MOFETIL [Suspect]
     Dosage: ON DAY 214
     Route: 065
  4. METHYLPREDNISOLONE [Suspect]
     Dosage: ON DAY 1; DRUG: METHYLPREDNISOLONE HEMISUCCINATE
     Route: 065
  5. METHYLPREDNISOLONE [Suspect]
     Dosage: ON DAY 2
     Route: 065
  6. METHYLPREDNISOLONE [Suspect]
     Dosage: ON DAY 3
     Route: 065
  7. METHYLPREDNISOLONE [Suspect]
     Dosage: ON DAY 30
     Route: 065
  8. METHYLPREDNISOLONE [Suspect]
     Route: 065
  9. METHYLPREDNISOLONE [Suspect]
     Route: 065
  10. THYMOGLOBULIN [Suspect]
     Route: 065
  11. CYCLOSPORINE [Suspect]
     Dosage: DOSE: 100 TO 200 NG/ML; STOPPED ON DAY 78
     Route: 065
  12. EVEROLIMUS [Suspect]
     Dosage: STARTED ON DAY 46 AND STOPPED ON DAY 70
     Route: 065
  13. TACROLIMUS [Suspect]
     Route: 065
  14. TACROLIMUS [Suspect]
     Dosage: DOSE: 3NG/ML RESIDUAL RATE
     Route: 065
  15. TACROLIMUS [Suspect]
     Dosage: DOSE: 5.9 TO 7.5 NG/L
     Route: 065
  16. COTRIM [Suspect]
     Route: 065
  17. COTRIM [Suspect]
     Route: 065

REACTIONS (17)
  - ABSCESS [None]
  - BACTERAEMIA [None]
  - BRONCHOPULMONARY ASPERGILLOSIS [None]
  - CARDIOGENIC SHOCK [None]
  - ENCEPHALOPATHY [None]
  - ENTEROBACTER INFECTION [None]
  - ESCHERICHIA BACTERAEMIA [None]
  - ESCHERICHIA SEPSIS [None]
  - HAEMATOTOXICITY [None]
  - LEUKOPENIA [None]
  - LUNG INFILTRATION [None]
  - NEUROMYOPATHY [None]
  - RENAL FAILURE [None]
  - THROMBOCYTOPENIA [None]
  - THROMBOTIC MICROANGIOPATHY [None]
  - TOXOPLASMOSIS [None]
  - TRANSPLANT REJECTION [None]
